FAERS Safety Report 15022317 (Version 2)
Quarter: 2020Q4

REPORT INFORMATION
  Report Type: Spontaneous
  Country: AU (occurrence: AU)
  Receive Date: 20180618
  Receipt Date: 20201119
  Transmission Date: 20210113
  Serious: Yes (Other)
  Sender: FDA-Public Use
  Company Number: AU-JNJFOC-20180618235

PATIENT
  Sex: Male

DRUGS (1)
  1. STELARA [Suspect]
     Active Substance: USTEKINUMAB
     Indication: CROHN^S DISEASE
     Dosage: 45 MG (2 VIALS)
     Route: 058

REACTIONS (4)
  - Poor quality product administered [Unknown]
  - Nephrolithiasis [Unknown]
  - Product storage error [Unknown]
  - Malaise [Unknown]

NARRATIVE: CASE EVENT DATE: 2018
